FAERS Safety Report 8308595 (Version 2)
Quarter: 2013Q2

REPORT INFORMATION
  Report Type: Report from Study
  Country: VE (occurrence: VE)
  Receive Date: 20111222
  Receipt Date: 20130520
  Transmission Date: 20140414
  Serious: Yes (Death)
  Sender: FDA-Public Use
  Company Number: PHHY2011VE110002

PATIENT
  Age: 82 Year
  Sex: Female

DRUGS (6)
  1. ACLASTA [Suspect]
     Indication: FEMUR FRACTURE
     Dosage: 5 MG (ONCE A YEAR)
     Route: 042
     Dates: start: 20101110
  2. ACLASTA [Suspect]
     Indication: OFF LABEL USE
     Dosage: 5 MG (ONCE A YEAR)
     Route: 042
     Dates: start: 2011
  3. OXYGEN [Concomitant]
     Indication: METASTASES TO LUNG
  4. LOSARTAN [Concomitant]
     Indication: HYPERTENSION
     Dosage: 50 MG, QD
     Route: 048
  5. ADALAT OROS [Concomitant]
     Indication: HYPERTENSION
     Dosage: 30 MG, QD
     Route: 048
  6. CHEMOTHERAPEUTICS [Concomitant]
     Indication: RENAL CANCER

REACTIONS (1)
  - Metastatic neoplasm [Fatal]
